FAERS Safety Report 15666400 (Version 1)
Quarter: 2018Q4

REPORT INFORMATION
  Report Type: Spontaneous
  Country: US (occurrence: US)
  Receive Date: 20181128
  Receipt Date: 20181128
  Transmission Date: 20190205
  Serious: Yes (Hospitalization)
  Sender: FDA-Public Use
  Company Number: US-SA-2018SA176581

PATIENT
  Age: 25 Year
  Sex: Female
  Weight: 38 kg

DRUGS (21)
  1. ACETAMINOPHEN. [Concomitant]
     Active Substance: ACETAMINOPHEN
     Dosage: 2 TABS, PRN
     Route: 048
     Dates: start: 20180619
  2. ALBUTEROL [SALBUTAMOL] [Concomitant]
     Active Substance: ALBUTEROL
     Dosage: 2 PUFF, Q6H
     Route: 055
     Dates: start: 20170601
  3. SINGULAIR [Concomitant]
     Active Substance: MONTELUKAST SODIUM
     Dosage: 2 TABS, QD
     Route: 048
     Dates: start: 20120827
  4. FERROUS SULFATE. [Concomitant]
     Active Substance: FERROUS SULFATE
     Dosage: 1 TAB, QD
     Route: 048
     Dates: start: 20180223
  5. IBUPROFEN. [Concomitant]
     Active Substance: IBUPROFEN
     Dosage: 15 ML, Q6H
     Route: 048
     Dates: start: 20170601
  6. SODIUM CHLORIDE. [Concomitant]
     Active Substance: SODIUM CHLORIDE
     Indication: FLUSHING
     Dosage: 0.9 %
     Route: 042
     Dates: start: 20180319
  7. ALDURAZYME [Suspect]
     Active Substance: LARONIDASE
     Indication: MUCOPOLYSACCHARIDOSIS
     Dosage: 23.2 MG, QW
     Route: 041
     Dates: start: 20050407
  8. HEPARIN [Concomitant]
     Active Substance: HEPARIN SODIUM
     Indication: FLUSHING
     Dosage: 100 UG/ML
     Route: 042
     Dates: start: 20180319
  9. EPINEPHRINE. [Concomitant]
     Active Substance: EPINEPHRINE
     Indication: ANAPHYLACTIC REACTION
     Dosage: 0.3 MG, PRN
     Route: 030
     Dates: start: 20180319
  10. NORMAL SALINE [Concomitant]
     Active Substance: SODIUM CHLORIDE
     Dosage: 0.9 %
     Route: 042
     Dates: start: 20180319
  11. LMX [LIDOCAINE] [Concomitant]
     Indication: PREMEDICATION
     Dosage: 4 %
     Route: 061
     Dates: start: 20180319
  12. QVAR [Concomitant]
     Active Substance: BECLOMETHASONE DIPROPIONATE
     Dosage: 2 PUFF, BID
     Route: 055
     Dates: start: 20100517
  13. ENALAPRIL [Concomitant]
     Active Substance: ENALAPRIL
     Dosage: 5 MG, BID
     Route: 048
     Dates: start: 20180619
  14. DELSYM [Concomitant]
     Active Substance: DEXTROMETHORPHAN
     Dosage: 1 DF, BID
     Route: 048
     Dates: start: 20170601
  15. BACITRACIN. [Concomitant]
     Active Substance: BACITRACIN
     Dosage: 1 DF, BID
     Route: 061
     Dates: start: 20170120
  16. SYSTANE (HYPROMELLOSE 2910 (4000 MPA.S)) [Concomitant]
     Active Substance: HYPROMELLOSE 2910 (4000 MPA.S)
     Dosage: 1 DROP, QD
     Route: 021
     Dates: start: 20140206
  17. OXYGEN. [Concomitant]
     Active Substance: OXYGEN
     Dosage: 2 L, CONTINUOSLY
     Route: 045
     Dates: start: 20170302
  18. PREDNISOLONE ACETATE. [Concomitant]
     Active Substance: PREDNISOLONE ACETATE
     Dosage: 1 DROP, QD
     Route: 021
     Dates: start: 20140206
  19. VESICARE [Concomitant]
     Active Substance: SOLIFENACIN SUCCINATE
     Dosage: 1 TAB, QD
     Route: 048
     Dates: start: 20140206
  20. VICKS NYQUIL [Concomitant]
     Active Substance: ACETAMINOPHEN\DEXTROMETHORPHAN HYDROBROMIDE\DOXYLAMINE SUCCINATE
     Dosage: 2 TBSP, PRN
     Route: 048
     Dates: start: 20170227
  21. XARELTO [Concomitant]
     Active Substance: RIVAROXABAN
     Dosage: 1 TAB, QD
     Route: 048
     Dates: start: 20161004

REACTIONS (2)
  - Pneumonia [Unknown]
  - Respiration abnormal [Unknown]
